FAERS Safety Report 8221670-6 (Version None)
Quarter: 2012Q1

REPORT INFORMATION
  Report Type: 
  Country: None (occurrence: None)
  Receive Date: 20120320
  Receipt Date: 20120312
  Transmission Date: 20120608
  Serious: Yes (Other)
  Sender: FDA-Public Use
  Company Number: US-BAYER-2011-036249

PATIENT
  Age: 30 Year
  Sex: Female
  Weight: 105.22 kg

DRUGS (6)
  1. MULTI-VITAMIN [Concomitant]
     Dosage: 3-4 TIMES PER WEEK
  2. DROSPIRENONE AND ETHINYL ESTRADIOL [Suspect]
     Dosage: UNK
     Route: 048
     Dates: start: 20100303, end: 20100512
  3. ALLEGRA [Concomitant]
     Dosage: 180 MG, UNK
     Route: 048
  4. DROSPIRENONE AND ETHINYL ESTRADIOL [Suspect]
     Indication: CONTRACEPTION
     Dosage: UNK
     Route: 048
     Dates: start: 20090201, end: 20090912
  5. AMOXICILLIN AND CLAVULANATE POTASSIUM [Concomitant]
     Dosage: 125 MG, BID
     Route: 048
  6. NAPROXEN [Concomitant]
     Dosage: 500 MG, BID
     Route: 048

REACTIONS (10)
  - ARTHRALGIA [None]
  - ABASIA [None]
  - DEEP VEIN THROMBOSIS [None]
  - EMOTIONAL DISTRESS [None]
  - OEDEMA PERIPHERAL [None]
  - THROMBOSIS [None]
  - PAIN IN EXTREMITY [None]
  - WEIGHT INCREASED [None]
  - INJURY [None]
  - PAIN [None]
